FAERS Safety Report 8510769-2 (Version None)
Quarter: 2012Q3

REPORT INFORMATION
  Report Type: 
  Country: None (occurrence: None)
  Receive Date: 20120709
  Receipt Date: 20120709
  Transmission Date: 20120928
  Serious: Yes (Hospitalization)
  Sender: FDA-Public Use
  Company Number: None

PATIENT
  Sex: Male
  Weight: 100.47 kg

DRUGS (1)
  1. ERBITUX [Suspect]
     Dosage: 3180 MG

REACTIONS (4)
  - RASH [None]
  - DYSPHAGIA [None]
  - ANAL ABSCESS [None]
  - STOMATITIS [None]
